FAERS Safety Report 8218107-X (Version None)
Quarter: 2012Q1

REPORT INFORMATION
  Report Type: 
  Country: None (occurrence: None)
  Receive Date: 20120319
  Receipt Date: 20120305
  Transmission Date: 20120608
  Serious: Yes (Life-Threatening, Other)
  Sender: FDA-Public Use
  Company Number: DE-ROCHE-1045705

PATIENT
  Age: 67 Year
  Sex: Female
  Weight: 59 kg

DRUGS (7)
  1. DIGOXIN [Concomitant]
  2. TENORMIN [Concomitant]
  3. LEVOTHYROXINE SODIUM [Concomitant]
  4. COPEGUS [Suspect]
     Indication: HEPATITIS C
     Route: 048
     Dates: start: 20120131
  5. PEGINTERFERON ALFA-2A [Suspect]
     Indication: HEPATITIS C
     Route: 058
     Dates: start: 20120131
  6. TELAPREVIR [Suspect]
     Indication: HEPATITIS C
  7. MARCUMAR [Concomitant]

REACTIONS (2)
  - DIARRHOEA [None]
  - BRADYARRHYTHMIA [None]
